FAERS Safety Report 11700240 (Version 2)
Quarter: 2015Q4

REPORT INFORMATION
  Report Type: Spontaneous
  Country: US (occurrence: US)
  Receive Date: 20151105
  Receipt Date: 20151215
  Transmission Date: 20160304
  Serious: No
  Sender: FDA-Public Use
  Company Number: US-PFIZER INC-2015335842

PATIENT
  Age: 56 Year
  Sex: Male

DRUGS (1)
  1. SUTENT [Suspect]
     Active Substance: SUNITINIB MALATE
     Indication: BONE CANCER
     Dosage: UNK

REACTIONS (5)
  - Bone cancer [Unknown]
  - Product use issue [Unknown]
  - Pain in extremity [Unknown]
  - Pain [Unknown]
  - Disease progression [Unknown]
